FAERS Safety Report 6815582-X (Version None)
Quarter: 2010Q3

REPORT INFORMATION
  Report Type: 
  Country: None (occurrence: None)
  Receive Date: 20100702
  Receipt Date: 20100624
  Transmission Date: 20110219
  Serious: Yes (Other)
  Sender: FDA-Public Use
  Company Number: GB-ABBOTT-10P-167-0653426-00

PATIENT
  Age: 66 Year
  Sex: Female

DRUGS (2)
  1. VALPROATE SODIUM [Suspect]
     Indication: GRAND MAL CONVULSION
     Dates: start: 19840101
  2. CLONAZEPAM [Suspect]
     Indication: GRAND MAL CONVULSION
     Dates: start: 19840101

REACTIONS (22)
  - AMNESIA [None]
  - BALANCE DISORDER [None]
  - BLADDER DISORDER [None]
  - CONFUSIONAL STATE [None]
  - CONVULSION [None]
  - DEAFNESS [None]
  - DIARRHOEA [None]
  - DIZZINESS [None]
  - DRY MOUTH [None]
  - DYSKINESIA [None]
  - DYSPHAGIA [None]
  - DYSPNOEA [None]
  - FATIGUE [None]
  - HAEMORRHAGE [None]
  - MUSCULAR WEAKNESS [None]
  - PARAESTHESIA [None]
  - RASH PRURITIC [None]
  - SPEECH DISORDER [None]
  - SWELLING [None]
  - TREMOR [None]
  - VISUAL IMPAIRMENT [None]
  - WEIGHT INCREASED [None]
